FAERS Safety Report 18772052 (Version 4)
Quarter: 2021Q2

REPORT INFORMATION
  Report Type: Spontaneous
  Country: US (occurrence: US)
  Receive Date: 20210121
  Receipt Date: 20210406
  Transmission Date: 20210717
  Serious: No
  Sender: FDA-Public Use
  Company Number: US-ALKERMES INC.-ALK-2021-000280

PATIENT
  Sex: Male

DRUGS (1)
  1. VIVITROL [Suspect]
     Active Substance: NALTREXONE
     Indication: ALCOHOLISM
     Dosage: 380 MILLIGRAM, QMO
     Route: 030
     Dates: start: 202101, end: 202101

REACTIONS (7)
  - Product dose omission issue [Not Recovered/Not Resolved]
  - Overweight [Unknown]
  - Disturbance in attention [Not Recovered/Not Resolved]
  - Stress [Not Recovered/Not Resolved]
  - Alcoholism [Unknown]
  - Hepatic steatosis [Unknown]
  - Substance abuse [Unknown]

NARRATIVE: CASE EVENT DATE: 2021
